FAERS Safety Report 10480162 (Version 2)
Quarter: 2014Q3

REPORT INFORMATION
  Report Type: Spontaneous
  Country: GB (occurrence: GB)
  Receive Date: 20140929
  Receipt Date: 20140929
  Transmission Date: 20150326
  Serious: Yes (Other)
  Sender: FDA-Public Use
  Company Number: GB-BEH-2013036570

PATIENT
  Age: 23 Year
  Sex: Female

DRUGS (1)
  1. FIBRINOGEN [Suspect]
     Active Substance: FIBRINOGEN HUMAN
     Indication: BLOOD FIBRINOGEN DECREASED

REACTIONS (2)
  - Exposure during pregnancy [Recovered/Resolved]
  - Drug ineffective for unapproved indication [Recovered/Resolved]
